FAERS Safety Report 11704024 (Version 1)
Quarter: 2015Q4

REPORT INFORMATION
  Report Type: Spontaneous
  Country: US (occurrence: US)
  Receive Date: 20151106
  Receipt Date: 20151106
  Transmission Date: 20160304
  Serious: No
  Sender: FDA-Public Use
  Company Number: US-ASTRAZENECA-2015SF04365

PATIENT
  Sex: Female

DRUGS (1)
  1. BYDUREON [Suspect]
     Active Substance: EXENATIDE
     Route: 058

REACTIONS (5)
  - Drug hypersensitivity [Unknown]
  - Hypoglycaemia [Unknown]
  - Tremor [Unknown]
  - Feeling abnormal [Unknown]
  - Vomiting [Unknown]
